FAERS Safety Report 19651200 (Version 1)
Quarter: 2021Q3

REPORT INFORMATION
  Report Type: Report from Study
  Country: JP (occurrence: JP)
  Receive Date: 20210803
  Receipt Date: 20210803
  Transmission Date: 20211014
  Serious: Yes (Hospitalization)
  Sender: FDA-Public Use
  Company Number: JP-ROCHE-2882605

PATIENT
  Sex: Female

DRUGS (16)
  1. TRASTUZUMAB. [Suspect]
     Active Substance: TRASTUZUMAB
     Route: 041
     Dates: start: 20210105, end: 20210126
  2. PERTUZUMAB. [Suspect]
     Active Substance: PERTUZUMAB
     Indication: BREAST CANCER
     Route: 042
     Dates: start: 20180316, end: 20180316
  3. TRASTUZUMAB. [Suspect]
     Active Substance: TRASTUZUMAB
     Indication: BREAST CANCER
     Route: 041
     Dates: start: 20180316, end: 20180316
  4. TRASTUZUMAB. [Suspect]
     Active Substance: TRASTUZUMAB
     Route: 041
     Dates: start: 20200107, end: 20200825
  5. TRASTUZUMAB. [Suspect]
     Active Substance: TRASTUZUMAB
     Route: 041
     Dates: start: 20201013, end: 20201124
  6. TRASTUZUMAB. [Suspect]
     Active Substance: TRASTUZUMAB
     Route: 041
     Dates: start: 20191008, end: 20191210
  7. PERTUZUMAB. [Suspect]
     Active Substance: PERTUZUMAB
     Route: 041
     Dates: start: 20180410, end: 20190115
  8. PERTUZUMAB. [Suspect]
     Active Substance: PERTUZUMAB
     Dosage: MOST RECENT DOSE PRIOR TO AE 20/APR/2021
     Route: 041
     Dates: start: 20210309
  9. PERTUZUMAB. [Suspect]
     Active Substance: PERTUZUMAB
     Route: 041
     Dates: start: 20190305, end: 20190910
  10. PERTUZUMAB. [Suspect]
     Active Substance: PERTUZUMAB
     Route: 041
     Dates: start: 20201013, end: 20210126
  11. TRASTUZUMAB. [Suspect]
     Active Substance: TRASTUZUMAB
     Route: 041
     Dates: start: 20180410, end: 20190115
  12. TRASTUZUMAB. [Suspect]
     Active Substance: TRASTUZUMAB
     Route: 041
     Dates: start: 20190305, end: 20190910
  13. TRASTUZUMAB. [Suspect]
     Active Substance: TRASTUZUMAB
     Route: 041
     Dates: start: 20210309, end: 20210420
  14. PERTUZUMAB. [Suspect]
     Active Substance: PERTUZUMAB
     Route: 041
     Dates: start: 20191008, end: 20191210
  15. PERTUZUMAB. [Suspect]
     Active Substance: PERTUZUMAB
     Route: 041
     Dates: start: 20200107, end: 20200825
  16. ERIBULIN MESILATE [Concomitant]
     Active Substance: ERIBULIN
     Indication: BREAST CANCER
     Dosage: UNKNOWN
     Route: 041

REACTIONS (1)
  - Pulmonary embolism [Recovering/Resolving]

NARRATIVE: CASE EVENT DATE: 20210202
